FAERS Safety Report 7563986-2 (Version None)
Quarter: 2011Q2

REPORT INFORMATION
  Report Type: 
  Country: None (occurrence: None)
  Receive Date: 20110622
  Receipt Date: 20110614
  Transmission Date: 20111010
  Serious: Yes (Other)
  Sender: FDA-Public Use
  Company Number: FR-ROCHE-783953

PATIENT
  Sex: Male
  Weight: 61.5 kg

DRUGS (1)
  1. MIRCERA [Suspect]
     Route: 042
     Dates: start: 20100703

REACTIONS (1)
  - RETICULOCYTE COUNT DECREASED [None]
